FAERS Safety Report 16978486 (Version 3)
Quarter: 2019Q4

REPORT INFORMATION
  Report Type: Spontaneous
  Country: JP (occurrence: JP)
  Receive Date: 20191031
  Receipt Date: 20191113
  Transmission Date: 20200122
  Serious: Yes (Other)
  Sender: FDA-Public Use
  Company Number: JP-PFIZER INC-2019470770

PATIENT
  Age: 8 Day
  Sex: Male

DRUGS (1)
  1. MEROPENEM. [Suspect]
     Active Substance: MEROPENEM
     Dosage: 120 MG/KG, QD
     Route: 041

REACTIONS (3)
  - Oculogyric crisis [Unknown]
  - Tachycardia [Unknown]
  - Neonatal seizure [Unknown]
